FAERS Safety Report 4529983-6 (Version None)
Quarter: 2004Q4

REPORT INFORMATION
  Report Type: 
  Country: None (occurrence: None)
  Receive Date: 20041214
  Receipt Date: 20041201
  Transmission Date: 20050328
  Serious: Yes (Other)
  Sender: FDA-Public Use
  Company Number: 2004104444

PATIENT
  Age: 66 Year
  Sex: Male

DRUGS (1)
  1. LOPID [Suspect]
     Indication: HYPERCHOLESTEROLAEMIA
     Dosage: 1200 MG (600 MG, 2 IN 1 D)
     Dates: start: 20040401

REACTIONS (2)
  - ASTHENIA [None]
  - MYALGIA [None]
